FAERS Safety Report 6998534-9 (Version None)
Quarter: 2010Q3

REPORT INFORMATION
  Report Type: 
  Country: None (occurrence: None)
  Receive Date: 20100920
  Receipt Date: 20090720
  Transmission Date: 20110219
  Serious: Yes (Other)
  Sender: FDA-Public Use
  Company Number: US-ASTRAZENECA-2007UW04490

PATIENT
  Age: 6336 Day
  Sex: Male

DRUGS (5)
  1. SEROQUEL [Suspect]
     Indication: HALLUCINATION, AUDITORY
     Dosage: 25 TO 300 MG
     Route: 048
     Dates: start: 20050622
  2. SEROQUEL [Suspect]
     Indication: HALLUCINATION, VISUAL
     Dosage: 25 TO 300 MG
     Route: 048
     Dates: start: 20050622
  3. REMERON [Concomitant]
     Indication: DEPRESSION
     Route: 048
     Dates: start: 20050621
  4. DEPAKOTE [Concomitant]
     Dates: start: 20011120
  5. LITHIUM CARBONATE [Concomitant]
     Dates: start: 20011120

REACTIONS (4)
  - DIABETES MELLITUS [None]
  - DIABETIC KETOACIDOSIS [None]
  - PANCREATITIS [None]
  - TYPE 2 DIABETES MELLITUS [None]
